FAERS Safety Report 19862712 (Version 3)
Quarter: 2022Q4

REPORT INFORMATION
  Report Type: Spontaneous
  Country: US (occurrence: US)
  Receive Date: 20210921
  Receipt Date: 20221121
  Transmission Date: 20230112
  Serious: No
  Sender: FDA-Public Use
  Company Number: US-PFIZER INC-2021030231

PATIENT
  Age: 69 Year
  Sex: Female

DRUGS (3)
  1. XELJANZ XR [Suspect]
     Active Substance: TOFACITINIB CITRATE
     Dosage: 11 MG
     Dates: start: 202012, end: 20210104
  2. XELJANZ XR [Suspect]
     Active Substance: TOFACITINIB CITRATE
     Dosage: 11 MG
     Dates: start: 20200901, end: 20210923
  3. COVID-19 VACCINE [Concomitant]
     Dosage: UNK
     Dates: start: 202101

REACTIONS (11)
  - Off label use [Unknown]
  - Product use issue [Unknown]
  - Hypoaesthesia [Unknown]
  - Paraesthesia [Unknown]
  - Blood pressure increased [Unknown]
  - Blood cholesterol increased [Unknown]
  - Hypertension [Unknown]
  - Hyperlipidaemia [Unknown]
  - Pain in extremity [Unknown]
  - Pain in extremity [Unknown]
  - Neck pain [Unknown]
